FAERS Safety Report 4743973-X (Version None)
Quarter: 2005Q3

REPORT INFORMATION
  Report Type: 
  Country: None (occurrence: None)
  Receive Date: 20050810
  Receipt Date: 20050810
  Transmission Date: 20060218
  Serious: Yes (Death)
  Sender: FDA-Public Use
  Company Number: None

PATIENT
  Age: 26 Year
  Sex: Female
  Weight: 136.0791 kg

DRUGS (8)
  1. DURAGESIC-50 [Suspect]
     Indication: MIGRAINE
  2. KEPPRA [Concomitant]
  3. TOPAMAX [Concomitant]
  4. DILANTIN [Concomitant]
  5. ALLEGRA [Concomitant]
  6. TRAZODONE [Concomitant]
  7. NORTRIPTYLINE HCL [Concomitant]
  8. PROTONIX [Concomitant]

REACTIONS (1)
  - DRUG LEVEL INCREASED [None]
